FAERS Safety Report 10345362 (Version 1)
Quarter: 2014Q3

REPORT INFORMATION
  Report Type: Spontaneous
  Country: IL (occurrence: None)
  Receive Date: 20140723
  Receipt Date: 20140723
  Transmission Date: 20150326
  Serious: Yes (Other)
  Sender: FDA-Public Use
  Company Number: 2014HINLIT0637

PATIENT
  Age: 34 Year
  Sex: Male

DRUGS (4)
  1. CLONAZEPAM (CLONAZEPAM) [Concomitant]
  2. CARBAMAZEPINE (CARBAMAZEPINE) [Concomitant]
     Active Substance: CARBAMAZEPINE
  3. ESCITALOPRAM [Suspect]
     Active Substance: ESCITALOPRAM OXALATE
     Indication: AFFECTIVE DISORDER
     Dosage: 20 MG/D
  4. ZOPICLONE (ZOPICLONE) [Concomitant]
     Active Substance: ZOPICLONE

REACTIONS (1)
  - Bruxism [None]
